FAERS Safety Report 15365482 (Version 2)
Quarter: 2018Q3

REPORT INFORMATION
  Report Type: Spontaneous
  Country: US (occurrence: US)
  Receive Date: 20180910
  Receipt Date: 20180912
  Transmission Date: 20181010
  Serious: No
  Sender: FDA-Public Use
  Company Number: US-PFIZER INC-2017326546

PATIENT
  Age: 60 Year
  Sex: Female
  Weight: 113.4 kg

DRUGS (2)
  1. GENOTROPIN [Suspect]
     Active Substance: SOMATROPIN
     Indication: GROWTH HORMONE DEFICIENCY
  2. GENOTROPIN [Suspect]
     Active Substance: SOMATROPIN
     Indication: PITUITARY TUMOUR
     Dosage: 0.4 MG, 1X/DAY [ABOUT 7?8 YEARS AGO]
     Route: 058

REACTIONS (6)
  - Device breakage [Unknown]
  - Exposure via skin contact [Unknown]
  - Weight fluctuation [Unknown]
  - Accidental exposure to product [Unknown]
  - Malaise [Unknown]
  - Drug dose omission [Unknown]
